FAERS Safety Report 12117538 (Version 3)
Quarter: 2016Q1

REPORT INFORMATION
  Report Type: Report from Study
  Country: MX (occurrence: MX)
  Receive Date: 20160226
  Receipt Date: 20160316
  Transmission Date: 20160526
  Serious: Yes (Death, Other)
  Sender: FDA-Public Use
  Company Number: PHHY2016MX024849

PATIENT
  Age: 75 Year
  Sex: Male

DRUGS (1)
  1. ONBREZ [Suspect]
     Active Substance: INDACATEROL
     Indication: CHRONIC OBSTRUCTIVE PULMONARY DISEASE
     Dosage: 1 DF (150), QD (EVERY 24 HOURS)
     Route: 065
     Dates: start: 20131117

REACTIONS (8)
  - Renal disorder [Fatal]
  - Pneumonia [Fatal]
  - Cardiac arrest [Fatal]
  - Syncope [Fatal]
  - Vital functions abnormal [Fatal]
  - Cardiogenic shock [Fatal]
  - Hypertension [Not Recovered/Not Resolved]
  - Emphysema [Fatal]

NARRATIVE: CASE EVENT DATE: 20151227
